FAERS Safety Report 9256846 (Version 1)
Quarter: 2013Q2

REPORT INFORMATION
  Report Type: Spontaneous
  Country: US (occurrence: None)
  Receive Date: 20130423
  Receipt Date: 20130423
  Transmission Date: 20140414
  Serious: Yes (Other)
  Sender: FDA-Public Use
  Company Number: None

PATIENT
  Age: 32 Year
  Sex: Female
  Weight: 72.12 kg

DRUGS (1)
  1. SOLODYN [Suspect]
     Indication: ACNE
     Dosage: 1 TABLET, DAILY, PO
     Route: 048
     Dates: start: 20130326, end: 20130415

REACTIONS (8)
  - Headache [None]
  - Migraine [None]
  - Vision blurred [None]
  - Fatigue [None]
  - Pruritus [None]
  - Urticaria [None]
  - Scratch [None]
  - Erythema [None]
